FAERS Safety Report 18248453 (Version 1)
Quarter: 2020Q3

REPORT INFORMATION
  Report Type: Report from Study
  Country: CA (occurrence: CA)
  Receive Date: 20200909
  Receipt Date: 20200909
  Transmission Date: 20201103
  Serious: Yes (Other)
  Sender: FDA-Public Use
  Company Number: CA-JNJFOC-20190625064

PATIENT
  Age: 17 Year
  Sex: Male
  Weight: 59 kg

DRUGS (4)
  1. ACIDE FOLIQUE [Concomitant]
     Active Substance: FOLIC ACID
     Route: 048
  2. METHOTREXATE. [Concomitant]
     Active Substance: METHOTREXATE
     Route: 048
  3. REMICADE [Suspect]
     Active Substance: INFLIXIMAB
     Route: 042
     Dates: start: 201906
  4. REMICADE [Suspect]
     Active Substance: INFLIXIMAB
     Indication: CROHN^S DISEASE
     Route: 042
     Dates: start: 20190125

REACTIONS (7)
  - Product use issue [Unknown]
  - Haemorrhage [Not Recovered/Not Resolved]
  - Vomiting [Recovered/Resolved]
  - Inappropriate schedule of product administration [Not Recovered/Not Resolved]
  - Stomach mass [Recovered/Resolved]
  - Seasonal allergy [Unknown]
  - Off label use [Unknown]

NARRATIVE: CASE EVENT DATE: 20190125
